FAERS Safety Report 8834516 (Version 2)
Quarter: 2012Q4

REPORT INFORMATION
  Report Type: 
  Country: US (occurrence: US)
  Receive Date: 20121010
  Receipt Date: 20121214
  Transmission Date: 20130627
  Serious: No
  Sender: FDA-Public Use
  Company Number: US-PFIZER INC-2012250307

PATIENT
  Age: 65 Year
  Sex: Female
  Weight: 54.42 kg

DRUGS (7)
  1. LYRICA [Suspect]
     Indication: NERVE DAMAGE
     Dosage: 50 mg, UNK
     Dates: start: 201206
  2. LYRICA [Suspect]
     Indication: SHINGLES
  3. LYRICA [Suspect]
     Indication: GENERAL BODY PAIN
  4. VALIUM [Suspect]
     Indication: ANXIETY
     Dosage: UNK
  5. VALIUM [Suspect]
     Indication: PANIC ATTACKS
     Dosage: 2 mg one to two times a day
  6. ENALAPRIL [Concomitant]
     Indication: BLOOD PRESSURE ABNORMAL
     Dosage: 10 mg, daily
  7. RANITIDINE [Concomitant]
     Indication: ACID REFLUX (ESOPHAGEAL)
     Dosage: 300 mg, 2x/day

REACTIONS (6)
  - Drug ineffective [Unknown]
  - Pain [Not Recovered/Not Resolved]
  - Burning sensation [Not Recovered/Not Resolved]
  - Paraesthesia [Not Recovered/Not Resolved]
  - Insomnia [Unknown]
  - Fatigue [Unknown]
